FAERS Safety Report 12943183 (Version 2)
Quarter: 2016Q4

REPORT INFORMATION
  Report Type: Spontaneous
  Country: US (occurrence: US)
  Receive Date: 20161115
  Receipt Date: 20161121
  Transmission Date: 20170207
  Serious: No
  Sender: FDA-Public Use
  Company Number: US-NOVOPROD-480073

PATIENT
  Age: 52 Year
  Sex: Female

DRUGS (2)
  1. VAGIFEM LD [Suspect]
     Active Substance: ESTRADIOL
     Indication: OFF LABEL USE
  2. VAGIFEM LD [Suspect]
     Active Substance: ESTRADIOL
     Indication: VULVOVAGINAL PAIN
     Dosage: UNK
     Route: 067
     Dates: end: 20160129

REACTIONS (7)
  - Somnolence [Recovered/Resolved]
  - Dyspnoea [Recovered/Resolved]
  - Abdominal discomfort [Recovered/Resolved]
  - Off label use [Recovered/Resolved]
  - Chest discomfort [Recovered/Resolved]
  - Headache [Recovered/Resolved]
  - Nausea [Recovered/Resolved]
